FAERS Safety Report 24801860 (Version 1)
Quarter: 2025Q1

REPORT INFORMATION
  Report Type: Spontaneous
  Country: US (occurrence: US)
  Receive Date: 20250102
  Receipt Date: 20250102
  Transmission Date: 20250409
  Serious: No
  Sender: BAUSCH AND LOMB
  Company Number: US-BAUSCHBL-2024BNL039592

PATIENT
  Sex: Male

DRUGS (3)
  1. LUMIFY [Suspect]
     Active Substance: BRIMONIDINE TARTRATE
     Indication: Dry eye
     Route: 065
  2. LUMIFY [Suspect]
     Active Substance: BRIMONIDINE TARTRATE
  3. MINERALS\VITAMINS [Suspect]
     Active Substance: MINERALS\VITAMINS
     Indication: Dry eye
     Route: 048

REACTIONS (4)
  - Eye irritation [Not Recovered/Not Resolved]
  - Burning sensation [Recovered/Resolved]
  - Expired product administered [Unknown]
  - Product use complaint [Unknown]
